FAERS Safety Report 10384069 (Version 2)
Quarter: 2014Q3

REPORT INFORMATION
  Report Type: Spontaneous
  Country: JP (occurrence: JP)
  Receive Date: 20140814
  Receipt Date: 20140814
  Transmission Date: 20150326
  Serious: Yes (Death)
  Sender: FDA-Public Use
  Company Number: JP-MYLAN-2014S1010855

PATIENT

DRUGS (2)
  1. CARBOPLATIN INJECTION 50 MG ^NK^ [Suspect]
     Active Substance: CARBOPLATIN
     Indication: NEUROENDOCRINE TUMOUR
     Dosage: 720 MG, 3 COURSE
     Route: 041
     Dates: start: 20140219, end: 20140404
  2. VEPESID [Suspect]
     Active Substance: ETOPOSIDE
     Indication: NEUROENDOCRINE TUMOUR
     Dosage: 130 MG, 3 COURSE
     Route: 041
     Dates: start: 20140219, end: 20140404

REACTIONS (5)
  - Leukoencephalopathy [Fatal]
  - Convulsion [Fatal]
  - Altered state of consciousness [Fatal]
  - Cardiac arrest [Fatal]
  - Acute respiratory failure [Fatal]

NARRATIVE: CASE EVENT DATE: 20140504
